FAERS Safety Report 5737140-0 (Version None)
Quarter: 2008Q2

REPORT INFORMATION
  Report Type: 
  Country: None (occurrence: None)
  Receive Date: 20080513
  Receipt Date: 20080513
  Transmission Date: 20081010
  Serious: Yes (Other)
  Sender: FDA-Public Use
  Company Number: None

PATIENT
  Sex: Female
  Weight: 54.4316 kg

DRUGS (1)
  1. ENBREL [Suspect]
     Indication: PSORIASIS
     Dosage: 50 MG Q WEEK SQ; 50 MG 2 X A WEEK SQ
     Route: 058
     Dates: start: 20070216, end: 20070518

REACTIONS (1)
  - RASH PUSTULAR [None]
